FAERS Safety Report 4832472-2 (Version None)
Quarter: 2005Q4

REPORT INFORMATION
  Report Type: 
  Country: None (occurrence: None)
  Receive Date: 20051121
  Receipt Date: 20050622
  Transmission Date: 20060501
  Serious: Yes (Hospitalization)
  Sender: FDA-Public Use
  Company Number: US-BRISTOL-MYERS SQUIBB COMPANY-13011879

PATIENT
  Age: 60 Year
  Sex: Female
  Weight: 58 kg

DRUGS (1)
  1. VEPESID [Suspect]
     Indication: NEUROENDOCRINE TUMOUR
     Route: 042
     Dates: start: 20050621, end: 20050621

REACTIONS (2)
  - ANXIETY [None]
  - HYPERSENSITIVITY [None]
